FAERS Safety Report 12200672 (Version 2)
Quarter: 2016Q2

REPORT INFORMATION
  Report Type: Report from Study
  Country: US (occurrence: US)
  Receive Date: 20160322
  Receipt Date: 20160426
  Transmission Date: 20160815
  Serious: Yes (Life-Threatening, Hospitalization, Disabling, Other)
  Sender: FDA-Public Use
  Company Number: US-GILEAD-2016-0199326

PATIENT
  Age: 64 Year
  Sex: Female

DRUGS (8)
  1. TYVASO [Concomitant]
     Active Substance: TREPROSTINIL
  2. ALENDRONATE [Concomitant]
     Active Substance: ALENDRONATE SODIUM
  3. AMBRISENTAN [Suspect]
     Active Substance: AMBRISENTAN
     Indication: PULMONARY HYPERTENSION
     Dosage: 10 MG, QD
     Route: 048
     Dates: start: 20140614
  4. SILDENAFIL. [Concomitant]
     Active Substance: SILDENAFIL
  5. AZATHIOPRINE. [Concomitant]
     Active Substance: AZATHIOPRINE
  6. NEXIUM [Concomitant]
     Active Substance: ESOMEPRAZOLE MAGNESIUM
  7. SYMBICORT [Concomitant]
     Active Substance: BUDESONIDE\FORMOTEROL FUMARATE DIHYDRATE
  8. NIFEDIPINE. [Concomitant]
     Active Substance: NIFEDIPINE

REACTIONS (6)
  - Raynaud^s phenomenon [Not Recovered/Not Resolved]
  - Respiratory failure [Recovered/Resolved]
  - Scleroderma [Not Recovered/Not Resolved]
  - Acute interstitial pneumonitis [Unknown]
  - Septic shock [Unknown]
  - Failure to thrive [Recovered/Resolved]

NARRATIVE: CASE EVENT DATE: 20160103
